FAERS Safety Report 8965350 (Version 5)
Quarter: 2013Q1

REPORT INFORMATION
  Report Type: Spontaneous
  Country: JP (occurrence: JP)
  Receive Date: 20121213
  Receipt Date: 20130319
  Transmission Date: 20140127
  Serious: Yes (Life-Threatening, Other)
  Sender: FDA-Public Use
  Company Number: JP-BRISTOL-MYERS SQUIBB COMPANY-17177809

PATIENT
  Age: 47 Year
  Sex: Male

DRUGS (11)
  1. METGLUCO [Suspect]
     Indication: DIABETES MELLITUS
     Dosage: 750MG,1500MG ON 2011-20NOV12:1 YEAR
     Route: 048
     Dates: start: 2009, end: 20121120
  2. ACTOS [Concomitant]
     Indication: DIABETES MELLITUS
     Route: 048
     Dates: end: 20121120
  3. MEVALOTIN [Concomitant]
     Indication: DYSLIPIDAEMIA
     Route: 048
     Dates: end: 20121120
  4. MICARDIS [Concomitant]
     Indication: HYPERTENSION
     Route: 048
     Dates: end: 20121120
  5. AMLODIN [Concomitant]
     Indication: HYPERTENSION
     Dosage: AMLODIN OD
     Route: 048
     Dates: end: 20121120
  6. GASTER D [Concomitant]
     Indication: GASTRITIS
     Route: 048
     Dates: end: 20121120
  7. NOVORAPID [Concomitant]
     Indication: DIABETES MELLITUS
     Dosage: INJECTION
     Route: 058
  8. LANTUS [Concomitant]
     Indication: DIABETES MELLITUS
     Dosage: INJECTION
     Route: 058
  9. DEPAKENE [Concomitant]
     Route: 048
  10. MYSLEE [Concomitant]
     Route: 048
  11. CELCOX [Concomitant]
     Route: 048

REACTIONS (2)
  - Lactic acidosis [Recovered/Resolved]
  - Pancreatitis [Unknown]
